FAERS Safety Report 21143363 (Version 1)
Quarter: 2022Q3

REPORT INFORMATION
  Report Type: Spontaneous
  Country: RU (occurrence: RU)
  Receive Date: 20220728
  Receipt Date: 20220728
  Transmission Date: 20221027
  Serious: Yes (Death, Life-Threatening, Other)
  Sender: FDA-Public Use
  Company Number: RU-ENDO PHARMACEUTICALS INC-2022-004404

PATIENT
  Age: 63 Year
  Sex: Male
  Weight: 105 kg

DRUGS (8)
  1. EDEX [Suspect]
     Active Substance: ALPROSTADIL
     Indication: Peripheral arterial occlusive disease
     Dosage: 60 ?G, DAILY
     Route: 041
     Dates: start: 20220513, end: 20220519
  2. EDEX [Suspect]
     Active Substance: ALPROSTADIL
     Indication: Peripheral arterial occlusive disease
     Dosage: 60 ?G, DAILY
     Route: 041
     Dates: start: 20220513, end: 20220519
  3. EDEX [Suspect]
     Active Substance: ALPROSTADIL
     Indication: Peripheral arterial occlusive disease
     Dosage: 60 ?G, DAILY
     Route: 041
     Dates: start: 20220513, end: 20220519
  4. EDEX [Suspect]
     Active Substance: ALPROSTADIL
     Indication: Peripheral arterial occlusive disease
     Dosage: 60 ?G, DAILY
     Route: 041
     Dates: start: 20220513, end: 20220519
  5. PERINDOPRIL ARGININE [Concomitant]
     Active Substance: PERINDOPRIL ARGININE
     Indication: Hypertension
     Dosage: 5 MG, UNKNOWN
     Route: 048
     Dates: end: 20220518
  6. CARDIOMAGNYL [Concomitant]
     Active Substance: ASPIRIN\MAGNESIUM HYDROXIDE
     Indication: Cardiovascular event prophylaxis
     Dosage: 76 MG, UNKNOWN
     Route: 048
     Dates: end: 20220518
  7. OMEPRAZOLE [Concomitant]
     Active Substance: OMEPRAZOLE
     Indication: Prophylaxis against gastrointestinal ulcer
     Dosage: 40 MG, UNKNOWN
     Route: 048
     Dates: end: 20220519
  8. METFORMIN [Concomitant]
     Active Substance: METFORMIN HYDROCHLORIDE
     Indication: Type 2 diabetes mellitus
     Dosage: 1000 MG, UNKNOWN
     Route: 048
     Dates: end: 20220519

REACTIONS (4)
  - Cardiogenic shock [Fatal]
  - Acute myocardial infarction [Fatal]
  - Hypotension [Fatal]
  - Atrial fibrillation [Recovering/Resolving]

NARRATIVE: CASE EVENT DATE: 20220519
